FAERS Safety Report 24056490 (Version 2)
Quarter: 2024Q3

REPORT INFORMATION
  Report Type: Spontaneous
  Country: GB (occurrence: GB)
  Receive Date: 20240705
  Receipt Date: 20240814
  Transmission Date: 20241016
  Serious: Yes (Disabling)
  Sender: DR REDDYS
  Company Number: None

PATIENT
  Age: 89 Year
  Sex: Female
  Weight: 55 kg

DRUGS (15)
  1. MEMANTINE [Suspect]
     Active Substance: MEMANTINE
     Indication: Amnesia
     Dosage: ONE TABLET EACH NIGHT TIME (FOR MEMORY) (WHITE ...
     Dates: start: 20231127
  2. MEMANTINE [Suspect]
     Active Substance: MEMANTINE
     Indication: Ill-defined disorder
  3. PRIMIDONE [Suspect]
     Active Substance: PRIMIDONE
     Indication: Ill-defined disorder
     Dosage: WEEK 1 AND 2: HALF A TABLET EACH DAY   WEEK 3 A...?50 MG TABLETS
     Route: 048
     Dates: start: 20240416, end: 20240627
  4. AMITRIPTYLINE HYDROCHLORIDE [Suspect]
     Active Substance: AMITRIPTYLINE HYDROCHLORIDE
     Indication: Ill-defined disorder
     Dosage: TAKE TWO TABLETS AT NIGHT AS DIRECTED (BLUE ROU...?20 MG DAILY
     Dates: start: 20220516
  5. DIHYDROCODEINE [Concomitant]
     Active Substance: DIHYDROCODEINE
     Indication: Ill-defined disorder
     Dosage: ONE OR TWO AT NIGHT (WHITE CAPSULE SHAPED DHC 6...
     Dates: start: 20220516
  6. POLYETHYLENE GLYCOL 3350\POTASSIUM CHLORIDE\SODIUM BICARBONATE\SODIUM [Concomitant]
     Active Substance: POLYETHYLENE GLYCOL 3350\POTASSIUM CHLORIDE\SODIUM BICARBONATE\SODIUM CHLORIDE
     Indication: Ill-defined disorder
     Dosage: ONE OR TWO DAILY, ORANGE?TPP YC - PLEASE RECLASSIFY
     Dates: start: 20220516
  7. LEVOTHYROXINE [Concomitant]
     Active Substance: LEVOTHYROXINE\LEVOTHYROXINE SODIUM
     Indication: Ill-defined disorder
     Dosage: TAKE ONE TABLET EACH DAY (TOTAL 75MCG) (WHITE R...
     Dates: start: 20220516
  8. METFORMIN [Concomitant]
     Active Substance: METFORMIN HYDROCHLORIDE
     Indication: Ill-defined disorder
     Dosage: ONE TABLET DAILY WITH BREAKFAST AND ONE WITH EV...
     Dates: start: 20220516
  9. MOVELAT [Concomitant]
     Indication: Ill-defined disorder
     Dosage: APPLY AS REQUIRED?TPP YC - PLEASE RECLASSIFY
     Dates: start: 20220516
  10. ACETAMINOPHEN [Concomitant]
     Active Substance: ACETAMINOPHEN
     Indication: Ill-defined disorder
     Dosage: TWO TO BE TAKEN FOUR TIMES DAILY WHEN REQUIRED?TPP YC - PLEASE RECLASSIFY
     Dates: start: 20220516
  11. DAPAGLIFLOZIN [Concomitant]
     Active Substance: DAPAGLIFLOZIN
     Indication: Glucose urine
     Dosage: ONE TABLET DAILY (TO EXCRETE GLUCOSE IN URINE)(...
     Dates: start: 20230928
  12. DAPAGLIFLOZIN [Concomitant]
     Active Substance: DAPAGLIFLOZIN
     Indication: Ill-defined disorder
  13. AMLODIPINE [Concomitant]
     Active Substance: AMLODIPINE BESYLATE
     Indication: Blood pressure increased
     Dosage: ONE TABLET DAILY (TO LOWER BLOOD PRESSURE)(WHIT...
     Dates: start: 20240120
  14. AMLODIPINE [Concomitant]
     Active Substance: AMLODIPINE BESYLATE
     Indication: Ill-defined disorder
  15. POTASSIUM BICARBONATE\SODIUM ALGINATE [Concomitant]
     Active Substance: POTASSIUM BICARBONATE\SODIUM ALGINATE
     Indication: Ill-defined disorder
     Dosage: ONE TABLET WHEN REQUIRED
     Dates: start: 20220809

REACTIONS (2)
  - Nausea [Recovered/Resolved]
  - Dizziness [Recovered/Resolved]

NARRATIVE: CASE EVENT DATE: 20240606
